FAERS Safety Report 7626162-0 (Version None)
Quarter: 2011Q3

REPORT INFORMATION
  Report Type: 
  Country: None (occurrence: None)
  Receive Date: 20110721
  Receipt Date: 20110706
  Transmission Date: 20111222
  Serious: Yes (Other)
  Sender: FDA-Public Use
  Company Number: PHHY2011US60405

PATIENT
  Age: 76 Year
  Sex: Female

DRUGS (9)
  1. BENEFIBER [Concomitant]
  2. CALCIUM CARBONATE [Concomitant]
  3. SYMBICORT [Concomitant]
  4. RECLAST [Suspect]
  5. AMLODIPINE [Concomitant]
  6. LORATADINE [Concomitant]
  7. FISH OIL [Concomitant]
  8. PREDNISONE [Suspect]
     Dosage: 10 MG, (ONE PILL FOR EACH DAY)
  9. VITAMIN D [Concomitant]

REACTIONS (4)
  - DIVERTICULITIS [None]
  - INFLUENZA LIKE ILLNESS [None]
  - BACK PAIN [None]
  - DYSSTASIA [None]
